FAERS Safety Report 16056004 (Version 1)
Quarter: 2019Q2

REPORT INFORMATION
  Report Type: Spontaneous
  Country: US (occurrence: US)
  Receive Date: 20190308
  Receipt Date: 20190308
  Transmission Date: 20190711
  Serious: Yes (Disabling)
  Sender: FDA-Public Use
  Company Number: None

PATIENT
  Age: 50 Year
  Sex: Male
  Weight: 79.65 kg

DRUGS (26)
  1. BENZONATATE. [Concomitant]
     Active Substance: BENZONATATE
  2. OCRELIZUMAB. [Concomitant]
     Active Substance: OCRELIZUMAB
  3. FLUTICASONE. [Concomitant]
     Active Substance: FLUTICASONE
  4. MELATONIN [Concomitant]
     Active Substance: MELATONIN
  5. BACLOFEN. [Concomitant]
     Active Substance: BACLOFEN
  6. METHYLPRENDISOLONE SODIUM SUCCINATE [Concomitant]
  7. DALFAMPRIDINE 10 MG [Suspect]
     Active Substance: DALFAMPRIDINE
     Indication: MULTIPLE SCLEROSIS
     Dosage: ?          QUANTITY:1 TABLET(S);?
     Route: 048
     Dates: start: 20181101
  8. SENNA [Concomitant]
     Active Substance: SENNA LEAF\SENNOSIDES\SENNOSIDES A AND B
  9. TOLTERODINE [Concomitant]
     Active Substance: TOLTERODINE
  10. CHOLECALCIFEROL [Concomitant]
     Active Substance: CHOLECALCIFEROL
  11. SAW PALMETTO [Concomitant]
     Active Substance: HERBALS\SAW PALMETTO
  12. DONEPEZIL. [Concomitant]
     Active Substance: DONEPEZIL
  13. GABAPENTIN. [Concomitant]
     Active Substance: GABAPENTIN
  14. FENNEL OIL [Concomitant]
  15. PROBIOTIC [Concomitant]
     Active Substance: PROBIOTICS NOS
  16. AMPYRA [Concomitant]
     Active Substance: DALFAMPRIDINE
  17. MONTELUKAST [Concomitant]
     Active Substance: MONTELUKAST SODIUM
  18. MULTIPLE VITAMIN [Concomitant]
     Active Substance: VITAMINS
  19. PSEUDOEPHEDRINE. [Concomitant]
     Active Substance: PSEUDOEPHEDRINE HYDROCHLORIDE
  20. AMPHETAMINE-DEXTROAMPHETAMINE [Concomitant]
     Active Substance: AMPHETAMINE SULFATE\DEXTROAMPHETAMINE
  21. LISINOPRIL. [Concomitant]
     Active Substance: LISINOPRIL
  22. AZELASTINE. [Concomitant]
     Active Substance: AZELASTINE HYDROCHLORIDE
  23. IBUPROFEN. [Concomitant]
     Active Substance: IBUPROFEN
  24. DIPHENHYDRAMINE. [Concomitant]
     Active Substance: DIPHENHYDRAMINE
  25. GLYCERIN (GLYCERIN) [Concomitant]
  26. CETIRIZINE [Concomitant]
     Active Substance: CETIRIZINE HYDROCHLORIDE

REACTIONS (4)
  - Product substitution issue [None]
  - Fall [None]
  - Therapeutic product effect incomplete [None]
  - Urinary incontinence [None]

NARRATIVE: CASE EVENT DATE: 20181101
